APPROVED DRUG PRODUCT: METHOTREXATE SODIUM PRESERVATIVE FREE
Active Ingredient: METHOTREXATE SODIUM
Strength: EQ 1GM BASE/40ML (EQ 25MG BASE/ML)
Dosage Form/Route: INJECTABLE;INJECTION
Application: A040716 | Product #001 | TE Code: AP
Applicant: ACCORD HEALTHCARE INC
Approved: Apr 30, 2007 | RLD: No | RS: Yes | Type: RX